FAERS Safety Report 14268981 (Version 1)
Quarter: 2017Q4

REPORT INFORMATION
  Report Type: Spontaneous
  Country: CO (occurrence: CO)
  Receive Date: 20171211
  Receipt Date: 20171211
  Transmission Date: 20180321
  Serious: Yes (Hospitalization)
  Sender: FDA-Public Use
  Company Number: CO-TOLMAR, INC.-2017CO016875

PATIENT
  Age: 89 Year
  Sex: Male

DRUGS (5)
  1. ELIGARD [Suspect]
     Active Substance: LEUPROLIDE ACETATE
     Indication: PROSTATE CANCER
     Dosage: 22.5 MG, UNK
     Route: 065
     Dates: start: 20100107, end: 20170717
  2. LOSARTAN. [Concomitant]
     Active Substance: LOSARTAN
  3. AMLODIPINE [Concomitant]
     Active Substance: AMLODIPINE BESYLATE
  4. CLARITROMICINA [Concomitant]
     Active Substance: CLARITHROMYCIN
  5. PREDNISOLONE. [Concomitant]
     Active Substance: PREDNISOLONE

REACTIONS (2)
  - Dyspnoea [Not Recovered/Not Resolved]
  - Respiratory tract congestion [Not Recovered/Not Resolved]

NARRATIVE: CASE EVENT DATE: 20171202
